FAERS Safety Report 5177005-9 (Version None)
Quarter: 2006Q4

REPORT INFORMATION
  Report Type: 
  Country: None (occurrence: None)
  Receive Date: 20061218
  Receipt Date: 20061206
  Transmission Date: 20070319
  Serious: Yes (Hospitalization, Other)
  Sender: FDA-Public Use
  Company Number: US-GLAXOSMITHKLINE-A0630628A

PATIENT
  Age: 79 Year
  Sex: Male

DRUGS (5)
  1. ADVAIR DISKUS 100/50 [Suspect]
     Indication: CHRONIC OBSTRUCTIVE PULMONARY DISEASE
     Dosage: 2PUFF UNKNOWN
     Route: 055
     Dates: start: 20061205, end: 20061205
  2. SPIRIVA [Concomitant]
  3. TERBUTALINE [Concomitant]
  4. LEVAQUIN [Concomitant]
  5. SOLU-MEDROL [Concomitant]

REACTIONS (2)
  - VITAL FUNCTIONS ABNORMAL [None]
  - VOMITING [None]
